FAERS Safety Report 8074457-1 (Version None)
Quarter: 2012Q1

REPORT INFORMATION
  Report Type: 
  Country: None (occurrence: None)
  Receive Date: 20120126
  Receipt Date: 20120120
  Transmission Date: 20120608
  Serious: No
  Sender: FDA-Public Use
  Company Number: US-B.I. PHARMACEUTICALS,INC./RIDGEFIELD-2012-BP-01328BP

PATIENT
  Sex: Male

DRUGS (8)
  1. PERFOROMIST [Concomitant]
     Indication: PNEUMONIA
     Route: 055
     Dates: start: 20111001, end: 20111101
  2. GABAPENTIN [Concomitant]
     Indication: NEUROPATHY PERIPHERAL
     Dosage: 2700 MG
     Route: 048
  3. LIPOFLAVONOID [Concomitant]
     Indication: TINNITUS
     Dates: start: 20110101
  4. ASPIRIN [Concomitant]
     Indication: PROPHYLAXIS
     Dosage: 81 MG
     Route: 048
  5. VITAMIN B-12 [Concomitant]
     Indication: PROPHYLAXIS
     Route: 048
  6. SPIRIVA [Suspect]
     Dosage: 18 MCG
     Route: 055
     Dates: start: 20111101
  7. SPIRIVA [Suspect]
     Indication: EMPHYSEMA
     Dosage: 18 MCG
     Route: 055
     Dates: start: 20100101, end: 20110101
  8. SIMVASTATIN [Concomitant]
     Indication: BLOOD CHOLESTEROL INCREASED
     Dosage: 20 MG
     Route: 048

REACTIONS (4)
  - PRURITUS [None]
  - DRY SKIN [None]
  - RASH MACULAR [None]
  - BURNING SENSATION [None]
